FAERS Safety Report 5499386-9 (Version None)
Quarter: 2007Q4

REPORT INFORMATION
  Report Type: 
  Country: None (occurrence: None)
  Receive Date: 20071026
  Receipt Date: 20071025
  Transmission Date: 20080405
  Serious: Yes (Death)
  Sender: FDA-Public Use
  Company Number: A0689872A

PATIENT
  Age: 74 Year
  Sex: Female
  Weight: 50 kg

DRUGS (3)
  1. SERETIDE [Suspect]
     Indication: ASTHMA
     Dates: start: 20050101, end: 20070819
  2. COMBIVENT [Concomitant]
     Dates: start: 20050101, end: 20070819
  3. SPIRIVA [Concomitant]
     Dates: start: 20050101, end: 20070819

REACTIONS (1)
  - DEATH [None]
